FAERS Safety Report 6102691-6 (Version None)
Quarter: 2009Q1

REPORT INFORMATION
  Report Type: 
  Country: None (occurrence: None)
  Receive Date: 20090304
  Receipt Date: 20030620
  Transmission Date: 20090719
  Serious: No
  Sender: FDA-Public Use
  Company Number: B0303026A

PATIENT

DRUGS (1)
  1. REQUIP [Suspect]
     Dates: start: 20021028

REACTIONS (3)
  - GAMMA-GLUTAMYLTRANSFERASE INCREASED [None]
  - LIVER FUNCTION TEST ABNORMAL [None]
  - SLEEP ATTACKS [None]
